FAERS Safety Report 9970003 (Version 2)
Quarter: 2015Q1

REPORT INFORMATION
  Report Type: Spontaneous
  Country: US (occurrence: None)
  Receive Date: 20140131
  Receipt Date: 20150129
  Transmission Date: 20150721
  Serious: Yes (Other)
  Sender: FDA-Public Use
  Company Number: 087077

PATIENT
  Sex: Female
  Weight: 65.8 kg

DRUGS (5)
  1. TEGRETOL [Concomitant]
     Active Substance: CARBAMAZEPINE
  2. ONSI (UNKNOWN) [Concomitant]
  3. NIFELAT (NIFEDIPINE) [Concomitant]
  4. KEPPRA XR [Suspect]
     Active Substance: LEVETIRACETAM
     Indication: SEIZURE
     Dosage: STRENGTH:750 MG; 750NGX4 - 2 IN AM AND 2 IN PM; EXPIRY DATE:31-DEC-2014
     Route: 048
     Dates: start: 2011
  5. FOLIC ACID. [Concomitant]
     Active Substance: FOLIC ACID

REACTIONS (6)
  - Complex partial seizures [None]
  - Inappropriate schedule of drug administration [None]
  - Eye pain [None]
  - Fall [None]
  - Headache [None]
  - Dizziness [None]

NARRATIVE: CASE EVENT DATE: 2011
